FAERS Safety Report 5666141-6 (Version None)
Quarter: 2008Q1

REPORT INFORMATION
  Report Type: 
  Country: None (occurrence: None)
  Receive Date: 20080314
  Receipt Date: 20041122
  Transmission Date: 20080703
  Serious: No
  Sender: FDA-Public Use
  Company Number: US-ABBOTT-07P-163-0429967-00

PATIENT

DRUGS (3)
  1. HUMIRA [Suspect]
     Indication: RHEUMATOID ARTHRITIS
     Dates: start: 20040501, end: 20041001
  2. HUMIRA [Suspect]
     Dates: start: 20041001
  3. ESOMEPRAZOLE MAGNESIUM [Concomitant]
     Indication: DRUG USE FOR UNKNOWN INDICATION
     Dates: end: 20041101

REACTIONS (6)
  - DRUG INEFFECTIVE [None]
  - ERYTHEMA [None]
  - INJECTION SITE IRRITATION [None]
  - RHEUMATOID ARTHRITIS [None]
  - ROSACEA [None]
  - STOMATITIS [None]
